FAERS Safety Report 16735272 (Version 2)
Quarter: 2019Q3

REPORT INFORMATION
  Report Type: Report from Study
  Country: DE (occurrence: DE)
  Receive Date: 20190823
  Receipt Date: 20190909
  Transmission Date: 20191005
  Serious: Yes (Hospitalization)
  Sender: FDA-Public Use
  Company Number: DE-ACTELION-A-CH2019-194437

PATIENT
  Age: 65 Year
  Sex: Female

DRUGS (4)
  1. SILDENAFIL. [Concomitant]
     Active Substance: SILDENAFIL
     Indication: PULMONARY ARTERIAL HYPERTENSION
     Dosage: UNK
     Dates: start: 201701
  2. OPSUMIT [Suspect]
     Active Substance: MACITENTAN
     Indication: PULMONARY ARTERIAL HYPERTENSION
     Dosage: 10 MG, QD
     Route: 048
     Dates: start: 201706
  3. VELETRI [Suspect]
     Active Substance: EPOPROSTENOL
     Indication: PULMONARY ARTERIAL HYPERTENSION
     Dosage: 7.5 NG/KG, PER MIN
     Route: 042
     Dates: start: 20190204
  4. VELETRI [Suspect]
     Active Substance: EPOPROSTENOL
     Dosage: 7.14 NG/KG, PER MIN
     Route: 042
     Dates: start: 20181208

REACTIONS (7)
  - Feeling hot [Recovered/Resolved]
  - Peripheral venous disease [Recovered/Resolved]
  - Dyspnoea [Unknown]
  - Lymphoedema [Recovered/Resolved]
  - Erythema [Recovered/Resolved]
  - Catheter placement [Unknown]
  - Varicose vein [Recovered/Resolved]

NARRATIVE: CASE EVENT DATE: 201906
